FAERS Safety Report 4837067-2 (Version None)
Quarter: 2005Q4

REPORT INFORMATION
  Report Type: 
  Country: None (occurrence: None)
  Receive Date: 20051121
  Receipt Date: 20051121
  Transmission Date: 20060501
  Serious: Yes (Hospitalization)
  Sender: FDA-Public Use
  Company Number: None

PATIENT
  Age: 47 Year
  Sex: Male
  Weight: 81 kg

DRUGS (1)
  1. DEXAMETHASONE [Suspect]
     Indication: PARAPLEGIA
     Dosage: 4 MG Q 6 H
     Dates: start: 20050808, end: 20050930

REACTIONS (1)
  - SHARED PSYCHOTIC DISORDER [None]
